FAERS Safety Report 8854390 (Version 1)
Quarter: 2012Q4

REPORT INFORMATION
  Report Type: 
  Country: US (occurrence: US)
  Receive Date: 20121023
  Receipt Date: 20121023
  Transmission Date: 20130627
  Serious: No
  Sender: FDA-Public Use
  Company Number: US-VERTEX PHARMACEUTICAL INC.-2012-023071

PATIENT
  Age: 45 Year
  Sex: Male
  Weight: 113 kg

DRUGS (8)
  1. VX-950 [Suspect]
     Indication: HEPATITIS C
     Dosage: 750 mg, tid
     Route: 048
  2. PEGINTRON                          /01543001/ [Concomitant]
     Indication: HEPATITIS C
     Dosage: 150 UNK, UNK
  3. RIBASPHERE [Concomitant]
     Indication: HEPATITIS C
     Dosage: 200 mg, UNK
  4. LISINOPRIL [Concomitant]
     Dosage: 20 mg, UNK
  5. GLYBURIDE [Concomitant]
     Dosage: 5 mg, UNK
  6. METFORMIN [Concomitant]
     Dosage: 1000 mg, UNK
  7. SILYBUM MARIANUM [Concomitant]
  8. IRON [Concomitant]
     Dosage: 100 mg, UNK

REACTIONS (5)
  - Fatigue [Unknown]
  - Diarrhoea [Recovered/Resolved]
  - Haemorrhoids [Recovered/Resolved]
  - Pruritus [Unknown]
  - Rash [Unknown]
